FAERS Safety Report 15637901 (Version 1)
Quarter: 2018Q4

REPORT INFORMATION
  Report Type: Spontaneous
  Country: US (occurrence: US)
  Receive Date: 20181120
  Receipt Date: 20181120
  Transmission Date: 20190205
  Serious: No
  Sender: FDA-Public Use
  Company Number: US-JNJFOC-20180603410

PATIENT
  Sex: Female

DRUGS (23)
  1. IMBRUVICA [Suspect]
     Active Substance: IBRUTINIB
     Indication: CHRONIC LYMPHOCYTIC LEUKAEMIA
     Dates: start: 20180406
  2. FOLIC ACID. [Concomitant]
     Active Substance: FOLIC ACID
  3. CLONIDINE. [Concomitant]
     Active Substance: CLONIDINE
  4. IRON [Concomitant]
     Active Substance: IRON
  5. ALLOPURINOL. [Concomitant]
     Active Substance: ALLOPURINOL
  6. IMBRUVICA [Suspect]
     Active Substance: IBRUTINIB
     Indication: B-CELL LYMPHOMA
     Route: 048
     Dates: start: 20170404
  7. IMBRUVICA [Suspect]
     Active Substance: IBRUTINIB
     Indication: B-CELL LYMPHOMA
     Route: 048
     Dates: start: 201704, end: 201805
  8. IMBRUVICA [Suspect]
     Active Substance: IBRUTINIB
     Indication: CHRONIC LYMPHOCYTIC LEUKAEMIA
     Dates: start: 201805
  9. ALLEGRA [Concomitant]
     Active Substance: FEXOFENADINE HYDROCHLORIDE
  10. ASPIRIN. [Concomitant]
     Active Substance: ASPIRIN
  11. SYNTHROID [Concomitant]
     Active Substance: LEVOTHYROXINE SODIUM
  12. METOPROLOL TARTRATE. [Concomitant]
     Active Substance: METOPROLOL TARTRATE
  13. NEURONTIN [Concomitant]
     Active Substance: GABAPENTIN
  14. MAGNESIUM [Concomitant]
     Active Substance: MAGNESIUM
  15. TYLENOL ARTHRITIS PAIN [Concomitant]
     Active Substance: ACETAMINOPHEN
  16. CALCIUM CARBONATE W/COLECALCIFEROL [Concomitant]
     Active Substance: CALCIUM CARBONATE\CHOLECALCIFEROL
  17. CYANOCOBALAMIN. [Concomitant]
     Active Substance: CYANOCOBALAMIN
  18. VITAMIN D [Concomitant]
     Active Substance: CHOLECALCIFEROL
  19. TRAMADOL. [Concomitant]
     Active Substance: TRAMADOL
  20. WARFARIN [Concomitant]
     Active Substance: WARFARIN
  21. MIRALAX [Concomitant]
     Active Substance: POLYETHYLENE GLYCOL 3350
  22. LASIX [Concomitant]
     Active Substance: FUROSEMIDE
  23. BACTRIM [Concomitant]
     Active Substance: SULFAMETHOXAZOLE\TRIMETHOPRIM

REACTIONS (1)
  - Hair disorder [Unknown]

NARRATIVE: CASE EVENT DATE: 2018
